FAERS Safety Report 8805697 (Version 1)
Quarter: 2012Q4

REPORT INFORMATION
  Report Type: Spontaneous
  Country: GB (occurrence: None)
  Receive Date: 20120917
  Receipt Date: 20120917
  Transmission Date: 20130627
  Serious: Yes (Disabling, Other)
  Sender: FDA-Public Use
  Company Number: 2012AP002870

PATIENT
  Age: 51 Year
  Sex: Male

DRUGS (1)
  1. OMEPRAZOLE [Suspect]
     Indication: REFLUX GASTRITIS
     Route: 048
     Dates: start: 20100101

REACTIONS (15)
  - Arthralgia [None]
  - Bronchospasm [None]
  - Dizziness [None]
  - Dry mouth [None]
  - Asthenia [None]
  - Malaise [None]
  - Headache [None]
  - Insomnia [None]
  - Myalgia [None]
  - Neck pain [None]
  - Vertigo [None]
  - Dysgeusia [None]
  - Vomiting [None]
  - Constipation [None]
  - Abdominal pain upper [None]
